FAERS Safety Report 9767695 (Version 1)
Quarter: 2013Q3

REPORT INFORMATION
  Report Type: Spontaneous
  Country: AR (occurrence: None)
  Receive Date: 20130828
  Receipt Date: 20130828
  Transmission Date: 20140515
  Serious: Yes (Death)
  Sender: FDA-Public Use
  Company Number: ENTC2013-0301

PATIENT
  Sex: Male

DRUGS (1)
  1. STALEVO (LEVODOPA, CARBIDOPA, ENTACAPONE) [Suspect]
     Indication: PARKINSON^S DISEASE
     Route: 048
     Dates: start: 2013, end: 201306

REACTIONS (2)
  - Pneumonia [None]
  - Vomiting [None]
